FAERS Safety Report 21046625 (Version 1)
Quarter: 2022Q3

REPORT INFORMATION
  Report Type: Spontaneous
  Country: US (occurrence: US)
  Receive Date: 20220706
  Receipt Date: 20220706
  Transmission Date: 20221026
  Serious: Yes (Hospitalization, Other)
  Sender: FDA-Public Use
  Company Number: US-BECTON DICKINSON-US-BD-22-000240

PATIENT
  Age: 29 Year
  Sex: Female
  Weight: 107.9 kg

DRUGS (2)
  1. CHLORHEXIDINE GLUCONATE\ISOPROPYL ALCOHOL [Suspect]
     Active Substance: CHLORHEXIDINE GLUCONATE\ISOPROPYL ALCOHOL
     Indication: Product used for unknown indication
     Route: 065
  2. REMODULIN [Suspect]
     Active Substance: TREPROSTINIL
     Indication: Pulmonary arterial hypertension
     Dosage: 0.054 MICROGRAM/KILOGRAM
     Route: 041
     Dates: start: 20210111

REACTIONS (6)
  - Injection site infection [Unknown]
  - Device infusion issue [Unknown]
  - Vascular device infection [Unknown]
  - Skin irritation [Unknown]
  - Dermatitis contact [Unknown]
  - Injection site swelling [Unknown]

NARRATIVE: CASE EVENT DATE: 20220603
